FAERS Safety Report 22114641 (Version 1)
Quarter: 2023Q1

REPORT INFORMATION
  Report Type: Report from Study
  Country: KR (occurrence: KR)
  Receive Date: 20230320
  Receipt Date: 20230320
  Transmission Date: 20230417
  Serious: Yes (Hospitalization, Other)
  Sender: FDA-Public Use
  Company Number: KR-MYLANLABS-2023M1028209

PATIENT
  Age: 53 Year
  Sex: Female

DRUGS (16)
  1. TRASTUZUMAB [Suspect]
     Active Substance: TRASTUZUMAB
     Indication: Breast cancer
     Dosage: 450 MILLIGRAM, Q3W
     Route: 042
     Dates: start: 20190708
  2. CELECOXIB [Concomitant]
     Active Substance: CELECOXIB
     Indication: Back pain
     Dosage: 200 MILLIGRAM, QD
     Route: 048
     Dates: start: 20190617
  3. DICLOFENAC [Concomitant]
     Active Substance: DICLOFENAC
     Dosage: UNK
     Route: 048
     Dates: start: 20190709, end: 20190811
  4. DEXAMETHASONE [Concomitant]
     Active Substance: DEXAMETHASONE
     Indication: Product used for unknown indication
     Dosage: 8 MILLIGRAM
     Route: 048
     Dates: start: 20190708
  5. DARBEPOETIN ALFA [Concomitant]
     Active Substance: DARBEPOETIN ALFA
     Dosage: 1 DOSAGE FORM, QD
     Route: 065
     Dates: start: 20190719, end: 20191130
  6. GLUTATHIONE [Concomitant]
     Active Substance: GLUTATHIONE
     Dosage: 600 MILLIGRAM
     Route: 042
     Dates: start: 20190608, end: 20191106
  7. MAGNESIUM OXIDE [Concomitant]
     Active Substance: MAGNESIUM OXIDE
     Dosage: 250 MILLIGRAM, (0.33 PER DAY)
     Route: 048
     Dates: start: 20190623, end: 20190718
  8. MEGESTROL ACETATE [Concomitant]
     Active Substance: MEGESTROL ACETATE
     Dosage: 1 DOSAGE FORM, QD
     Route: 048
     Dates: start: 20190719, end: 20200115
  9. LANSOPRAZOLE [Concomitant]
     Active Substance: LANSOPRAZOLE
     Dosage: 15 MILLIGRAM, QD
     Route: 065
     Dates: start: 20190617, end: 20190718
  10. LANSOPRAZOLE [Concomitant]
     Active Substance: LANSOPRAZOLE
     Dosage: 15 MILLIGRAM, QD
     Route: 048
     Dates: start: 20190928
  11. MOSAPRIDE CITRATE DIHYDRATE [Concomitant]
     Active Substance: MOSAPRIDE CITRATE DIHYDRATE
     Dosage: 5 MILLIGRAM (0.33 PER DAY)
     Route: 048
     Dates: start: 20190729, end: 20200731
  12. OXYCODONE HYDROCHLORIDE [Concomitant]
     Active Substance: OXYCODONE HYDROCHLORIDE
     Dosage: 5 MILLIGRAM
     Route: 048
     Dates: start: 20190719, end: 20190918
  13. ACETAMINOPHEN [Concomitant]
     Active Substance: ACETAMINOPHEN
     Dosage: 650 MILLIGRAM
     Route: 048
     Dates: start: 20190812, end: 20190818
  14. ACETAMINOPHEN [Concomitant]
     Active Substance: ACETAMINOPHEN
     Dosage: 650 MILLIGRAM
     Route: 048
     Dates: start: 20200107, end: 20200121
  15. CALCIUM POLYCARBOPHIL [Concomitant]
     Active Substance: CALCIUM POLYCARBOPHIL
     Dosage: 625 MILLIGRAM
     Route: 048
     Dates: start: 20190623, end: 20190718
  16. ESOMEPRAZOLE MAGNESIUM [Concomitant]
     Active Substance: ESOMEPRAZOLE MAGNESIUM
     Dosage: 20 MILLIGRAM
     Route: 048
     Dates: start: 20200103

REACTIONS (11)
  - Febrile neutropenia [Recovered/Resolved]
  - Decreased appetite [Recovered/Resolved]
  - Nocturia [Recovered/Resolved]
  - Nystagmus [Recovered/Resolved]
  - Sacral pain [Recovering/Resolving]
  - Stomatitis [Recovered/Resolved]
  - Dizziness [Recovered/Resolved]
  - Insomnia [Recovered/Resolved]
  - Headache [Recovered/Resolved]
  - Cough [Recovered/Resolved]
  - Diarrhoea [Recovered/Resolved]

NARRATIVE: CASE EVENT DATE: 20190709
